FAERS Safety Report 14564280 (Version 2)
Quarter: 2018Q1

REPORT INFORMATION
  Report Type: Spontaneous
  Country: NL (occurrence: NL)
  Receive Date: 20180222
  Receipt Date: 20180322
  Transmission Date: 20180509
  Serious: Yes (Other)
  Sender: FDA-Public Use
  Company Number: NL-SA-2018SA038702

PATIENT
  Sex: Female

DRUGS (3)
  1. LEMTRADA [Suspect]
     Active Substance: ALEMTUZUMAB
     Route: 041
     Dates: start: 20180115, end: 20180117
  2. LEMTRADA [Suspect]
     Active Substance: ALEMTUZUMAB
     Route: 041
     Dates: start: 201701, end: 201701
  3. TAVEGIL [Concomitant]
     Active Substance: CLEMASTINE FUMARATE
     Dosage: DOSE: 1 MG 2DD
     Route: 065

REACTIONS (6)
  - Rash [Recovered/Resolved with Sequelae]
  - Pain [Recovered/Resolved with Sequelae]
  - Petechiae [Recovered/Resolved with Sequelae]
  - Hypersensitivity vasculitis [Recovered/Resolved with Sequelae]
  - Arthralgia [Recovered/Resolved with Sequelae]
  - Exposure during pregnancy [Unknown]

NARRATIVE: CASE EVENT DATE: 20180125
